FAERS Safety Report 10697643 (Version 1)
Quarter: 2014Q4

REPORT INFORMATION
  Report Type: Spontaneous
  Country: US (occurrence: None)
  Receive Date: 20141223
  Receipt Date: 20141223
  Transmission Date: 20150529
  Serious: No
  Sender: FDA-Public Use
  Company Number: 1000071377

PATIENT
  Age: 82 Year
  Sex: Female

DRUGS (11)
  1. VIT D3 (COLECALCIFEROL) [Concomitant]
  2. AMLODIPINE [Suspect]
     Active Substance: AMLODIPINE BESYLATE
     Indication: HYPERTENSION
     Dosage: 5 MG (5 MG, 1 IN 1 D), ORAL
     Route: 048
     Dates: end: 20141004
  3. MVI (VITAMINS NOS) [Concomitant]
  4. CALCIUM [Concomitant]
     Active Substance: CALCIUM
  5. PREDNISONE. [Concomitant]
     Active Substance: PREDNISONE
  6. SPIRIVA (TIOTROPIUM BROMIDE) [Concomitant]
  7. SYNTHROID [Concomitant]
     Active Substance: LEVOTHYROXINE SODIUM
  8. AMOXI-CLAV (AMOXICILLIN, CLAVULANIC ACID) [Concomitant]
  9. LINZESS [Suspect]
     Active Substance: LINACLOTIDE
     Route: 048
     Dates: start: 20141004, end: 20141005
  10. ADVAIR (SERETIDE) [Concomitant]
  11. AMLODIPINE [Suspect]
     Active Substance: AMLODIPINE BESYLATE
     Indication: HYPERTENSION
     Route: 048
     Dates: start: 20141006, end: 20141007

REACTIONS (7)
  - Blood pressure decreased [None]
  - Anxiety [None]
  - Balance disorder [None]
  - Dizziness [None]
  - Dyspnoea [None]
  - Gait disturbance [None]
  - Vision blurred [None]

NARRATIVE: CASE EVENT DATE: 20141004
